FAERS Safety Report 21444298 (Version 1)
Quarter: 2022Q4

REPORT INFORMATION
  Report Type: Spontaneous
  Country: US (occurrence: US)
  Receive Date: 20221012
  Receipt Date: 20221012
  Transmission Date: 20230112
  Serious: No
  Sender: FDA-Public Use
  Company Number: US-JNJFOC-20221003154

PATIENT
  Sex: Female

DRUGS (2)
  1. SIMPONI ARIA [Suspect]
     Active Substance: GOLIMUMAB
     Indication: Rheumatoid arthritis
     Route: 041
     Dates: start: 202203
  2. SIMPONI ARIA [Suspect]
     Active Substance: GOLIMUMAB
     Route: 041
     Dates: start: 20220728

REACTIONS (2)
  - Rash [Not Recovered/Not Resolved]
  - Dizziness [Unknown]
